FAERS Safety Report 4495058-8 (Version None)
Quarter: 2004Q4

REPORT INFORMATION
  Report Type: 
  Country: None (occurrence: None)
  Receive Date: 20041108
  Receipt Date: 20031218
  Transmission Date: 20050328
  Serious: Yes (Hospitalization)
  Sender: FDA-Public Use
  Company Number: DE-ABBOTT-04P-062-0246457-00

PATIENT
  Sex: Female
  Weight: 78 kg

DRUGS (7)
  1. HUMIRA [Suspect]
     Indication: RHEUMATOID ARTHRITIS
     Route: 058
     Dates: start: 20030925, end: 20031001
  2. ETANERCEPT [Suspect]
     Indication: DRUG USE FOR UNKNOWN INDICATION
     Dates: start: 20031001
  3. LEFLUNOMIDE [Suspect]
     Indication: DRUG USE FOR UNKNOWN INDICATION
  4. PREDNISOLONE [Suspect]
     Indication: RHEUMATOID ARTHRITIS
     Dates: start: 20030301
  5. PREDNISOLONE [Suspect]
     Dates: start: 20030901, end: 20030901
  6. PREDNISOLONE [Suspect]
     Dates: start: 20031208, end: 20031208
  7. METHOTREXATE SODIUM [Concomitant]

REACTIONS (4)
  - BREAST HAEMORRHAGE [None]
  - DIARRHOEA [None]
  - TENDON RUPTURE [None]
  - TREMOR [None]
